FAERS Safety Report 20176883 (Version 1)
Quarter: 2021Q4

REPORT INFORMATION
  Report Type: Spontaneous
  Country: PE (occurrence: PE)
  Receive Date: 20211213
  Receipt Date: 20211213
  Transmission Date: 20220303
  Serious: Yes (Disabling)
  Sender: FDA-Public Use
  Company Number: PE-NOVARTISPH-NVSC2021PE283884

PATIENT
  Sex: Female

DRUGS (3)
  1. RIBOCICLIB [Suspect]
     Active Substance: RIBOCICLIB
     Indication: Breast cancer metastatic
     Dosage: UNK
     Route: 065
  2. EXEMESTANE [Suspect]
     Active Substance: EXEMESTANE
     Indication: Breast cancer metastatic
     Dosage: UNK
     Route: 065
  3. TAMOXIFEN [Concomitant]
     Active Substance: TAMOXIFEN
     Indication: Menopausal symptoms
     Dosage: UNK
     Route: 065

REACTIONS (1)
  - Eastern Cooperative Oncology Group performance status worsened [Unknown]
